FAERS Safety Report 5165230-2 (Version None)
Quarter: 2006Q4

REPORT INFORMATION
  Report Type: 
  Country: None (occurrence: None)
  Receive Date: 20061124
  Receipt Date: 20061113
  Transmission Date: 20070319
  Serious: Yes (Hospitalization)
  Sender: FDA-Public Use
  Company Number: 2006140615

PATIENT
  Age: 44 Year
  Sex: Female

DRUGS (1)
  1. PREDNISOLONE [Suspect]
     Indication: ANAEMIA HAEMOLYTIC AUTOIMMUNE
     Dosage: 30 MG (30 MG, 1 IN 1 D), ORAL
     Route: 048

REACTIONS (6)
  - BRAIN ABSCESS [None]
  - FACIAL PALSY [None]
  - HEMIPARESIS [None]
  - NOCARDIOSIS [None]
  - NUCLEAR MAGNETIC RESONANCE IMAGING ABNORMAL [None]
  - PLEURAL EFFUSION [None]
